FAERS Safety Report 6409985-5 (Version None)
Quarter: 2009Q4

REPORT INFORMATION
  Report Type: 
  Country: None (occurrence: None)
  Receive Date: 20091022
  Receipt Date: 20090819
  Transmission Date: 20100525
  Serious: No
  Sender: FDA-Public Use
  Company Number: US-BAYER-200928843NA

PATIENT
  Sex: Female

DRUGS (1)
  1. CLIMARA [Suspect]
     Indication: DRUG USE FOR UNKNOWN INDICATION
     Dosage: 0.075 MG/DAY (EACH 18.75 CM? SYSTEMS CONTAIN 5.7 MG OF ESTRADIOL USP)
     Route: 062
     Dates: start: 20040101

REACTIONS (2)
  - MOOD ALTERED [None]
  - RASH [None]
